FAERS Safety Report 5716003-0 (Version None)
Quarter: 2008Q2

REPORT INFORMATION
  Report Type: 
  Country: None (occurrence: None)
  Receive Date: 20080422
  Receipt Date: 20071106
  Transmission Date: 20081010
  Serious: Yes (Life-Threatening, Hospitalization)
  Sender: FDA-Public Use
  Company Number: APP200700327

PATIENT
  Age: 31 Year
  Sex: Female
  Weight: 104.7809 kg

DRUGS (6)
  1. HEPARIN SODIUM [Suspect]
     Indication: INDWELLING CATHETER MANAGEMENT
     Dosage: 5000 USP UNITS, DWELL, INJECTION
     Dates: start: 20070615
  2. HEPARIN SODIUM [Suspect]
  3. ZYVOX [Concomitant]
  4. PLAQUENIL [Concomitant]
  5. FORTAZ [Concomitant]
  6. TOPROL-XL [Concomitant]

REACTIONS (1)
  - THROMBOCYTOPENIA [None]
